FAERS Safety Report 18642845 (Version 1)
Quarter: 2020Q4

REPORT INFORMATION
  Report Type: Spontaneous
  Country: US (occurrence: US)
  Receive Date: 20201220
  Receipt Date: 20201220
  Transmission Date: 20210114
  Serious: Yes (Life-Threatening, Hospitalization)
  Sender: FDA-Public Use
  Company Number: None

PATIENT
  Age: 41 Year
  Sex: Male
  Weight: 85 kg

DRUGS (4)
  1. PROZAC [Suspect]
     Active Substance: FLUOXETINE HYDROCHLORIDE
     Indication: PRODUCT USED FOR UNKNOWN INDICATION
     Dosage: ?          OTHER FREQUENCY:TWO TIMES;OTHER ROUTE:LEFT HIP?
     Dates: start: 20200901
  2. HYDROXYZINE [Suspect]
     Active Substance: HYDROXYZINE HYDROCHLORIDE
  3. WELLBUTRIN [Suspect]
     Active Substance: BUPROPION HYDROCHLORIDE
  4. PALIPERIDONE. [Suspect]
     Active Substance: PALIPERIDONE

REACTIONS (12)
  - General physical health deterioration [None]
  - Stress [None]
  - Shock [None]
  - Near death experience [None]
  - Fear [None]
  - Slow speech [None]
  - Heart rate increased [None]
  - Crying [None]
  - Injury [None]
  - Emotional disorder [None]
  - Impaired quality of life [None]
  - Mental impairment [None]

NARRATIVE: CASE EVENT DATE: 20200824
